FAERS Safety Report 24261892 (Version 3)
Quarter: 2024Q4

REPORT INFORMATION
  Report Type: Spontaneous
  Country: US (occurrence: US)
  Receive Date: 20240829
  Receipt Date: 20241001
  Transmission Date: 20250114
  Serious: Yes (Hospitalization, Other)
  Sender: ORGANON
  Company Number: US-ORGANON-O2408USA001698

PATIENT
  Age: 62 Year
  Sex: Female

DRUGS (11)
  1. COZAAR [Suspect]
     Active Substance: LOSARTAN POTASSIUM
     Indication: Blood pressure measurement
     Dosage: UNK
     Route: 048
     Dates: start: 202403
  2. RECORLEV [Suspect]
     Active Substance: LEVOKETOCONAZOLE
     Indication: Cushing^s syndrome
     Dosage: 1 TABLET (2X/DAY, (150 MG)
     Route: 048
     Dates: start: 20240325
  3. RECORLEV [Suspect]
     Active Substance: LEVOKETOCONAZOLE
     Dosage: 1 TABLET (150 MG), 1X/DAY
     Route: 048
     Dates: start: 2024
  4. RECORLEV [Suspect]
     Active Substance: LEVOKETOCONAZOLE
     Dosage: 1 TABLET (150 MG), 2X/DAY
     Route: 048
     Dates: start: 2024
  5. RECORLEV [Suspect]
     Active Substance: LEVOKETOCONAZOLE
     Dosage: 2 TABLETS (300 MG) IN THE MORNING AND 1 TABLET (150 MG) IN THE EVENING.
     Route: 048
     Dates: start: 20240610
  6. RECORLEV [Suspect]
     Active Substance: LEVOKETOCONAZOLE
     Dosage: 1 TABLETS (150 MG), 1X/DAY IN THE EVENING
     Route: 048
     Dates: start: 20240610
  7. RECORLEV [Suspect]
     Active Substance: LEVOKETOCONAZOLE
     Dosage: 2 DOSAGE FORM, BID (2 TABLETS (300 MG), 2X/DAY)
     Route: 048
     Dates: start: 20240712
  8. RECORLEV [Suspect]
     Active Substance: LEVOKETOCONAZOLE
     Dosage: UNK
     Route: 048
     Dates: start: 2024
  9. RECORLEV [Suspect]
     Active Substance: LEVOKETOCONAZOLE
     Dosage: 2 TABLETS (300 MG), 2X/DAY
     Route: 048
     Dates: start: 20240804
  10. LISINOPRIL [Suspect]
     Active Substance: LISINOPRIL
     Indication: Blood pressure measurement
     Dosage: UNK
     Dates: start: 2024, end: 2024
  11. TRAZODONE [Concomitant]
     Active Substance: TRAZODONE HYDROCHLORIDE
     Dosage: UNK (AT BEDTIME)

REACTIONS (11)
  - Migraine [Recovering/Resolving]
  - Hypertension [Not Recovered/Not Resolved]
  - Weight decreased [Recovering/Resolving]
  - Cortisol abnormal [Unknown]
  - Spondylitis [Not Recovered/Not Resolved]
  - Vulvovaginal dryness [Not Recovered/Not Resolved]
  - Abdominal discomfort [Recovering/Resolving]
  - Diarrhoea [Recovering/Resolving]
  - Decreased appetite [Not Recovered/Not Resolved]
  - Back pain [Not Recovered/Not Resolved]
  - Insomnia [Unknown]

NARRATIVE: CASE EVENT DATE: 20240301
